FAERS Safety Report 10948126 (Version 2)
Quarter: 2015Q3

REPORT INFORMATION
  Report Type: Spontaneous
  Country: US (occurrence: None)
  Receive Date: 20150320
  Receipt Date: 20150918
  Transmission Date: 20151125
  Serious: Yes (Death, Life-Threatening, Hospitalization)
  Sender: FDA-Public Use
  Company Number: 1713747-2015-99994

PATIENT
  Sex: Female

DRUGS (3)
  1. DELFLEX [Suspect]
     Active Substance: CALCIUM CHLORIDE\DEXTROSE MONOHYDRATE\MAGNESIUM CHLORIDE\SODIUM CHLORIDE\SODIUM LACTATE
     Indication: CHRONIC KIDNEY DISEASE
     Dosage: PERITONEAL DIALYSIS
     Route: 033
     Dates: start: 20150304
  2. LIBERTY CYCLER SET [Concomitant]
  3. LIBERTY CYCLER [Concomitant]
     Active Substance: DEVICE

REACTIONS (4)
  - Fall [None]
  - Myocardial infarction [None]
  - Cerebrovascular accident [None]
  - Refusal of treatment by patient [None]
